FAERS Safety Report 20211496 (Version 1)
Quarter: 2021Q4

REPORT INFORMATION
  Report Type: Spontaneous
  Country: US (occurrence: None)
  Receive Date: 20211220
  Receipt Date: 20211220
  Transmission Date: 20220303
  Serious: No
  Sender: FDA-Public Use
  Company Number: None

PATIENT
  Age: 57 Year
  Sex: Female
  Weight: 70.8 kg

DRUGS (1)
  1. RASAGILINE MESYLATE [Suspect]
     Active Substance: RASAGILINE MESYLATE
     Dosage: FREQUENCY : DAILY;?
     Route: 048

REACTIONS (3)
  - Nausea [None]
  - Vomiting [None]
  - Treatment failure [None]
